FAERS Safety Report 5528731-0 (Version None)
Quarter: 2007Q4

REPORT INFORMATION
  Report Type: 
  Country: None (occurrence: None)
  Receive Date: 20071113
  Receipt Date: 20070812
  Transmission Date: 20080405
  Serious: Yes (Other)
  Sender: FDA-Public Use
  Company Number: 200715764US

PATIENT
  Age: 49 Year
  Sex: Male

DRUGS (16)
  1. APIDRA [Suspect]
     Dates: end: 20060101
  2. AVANDIA [Concomitant]
  3. PIOGLITAZONE [Concomitant]
  4. CELEBREX [Concomitant]
  5. ASPIRIN [Concomitant]
  6. CLOPIDOGREL (PLAVIX /01220701/) [Concomitant]
  7. NEURONTIN [Concomitant]
  8. HYDROCODONE BITARTRATE [Concomitant]
  9. SIMVASTATIN, EZETIMIBE (VYTORIN) [Concomitant]
  10. OLMESARTAN MEDOXOMIL (BENICAR) [Concomitant]
  11. NABUMETONE [Concomitant]
  12. BUPROPION (WELLBUTRIN /00700501/) [Concomitant]
  13. PHENYTOIN [Concomitant]
  14. FISH OIL [Concomitant]
  15. IBUPROFEN [Concomitant]
  16. PARACETAMOL (TYLENOL ARTHRITIS) [Concomitant]

REACTIONS (1)
  - HYPOGLYCAEMIA [None]
